FAERS Safety Report 7437053-2 (Version None)
Quarter: 2011Q2

REPORT INFORMATION
  Report Type: 
  Country: None (occurrence: None)
  Receive Date: 20110426
  Receipt Date: 20110413
  Transmission Date: 20111010
  Serious: Yes (Other)
  Sender: FDA-Public Use
  Company Number: PHHY2011US02503

PATIENT
  Sex: Female

DRUGS (3)
  1. VITAMINS [Concomitant]
  2. RECLAST [Suspect]
     Dates: start: 20090911
  3. OSTEOBIFLEX [Concomitant]

REACTIONS (12)
  - SWELLING [None]
  - BALANCE DISORDER [None]
  - TREMOR [None]
  - NECK PAIN [None]
  - MUSCLE ATROPHY [None]
  - MEMORY IMPAIRMENT [None]
  - ARTHRALGIA [None]
  - INFLUENZA LIKE ILLNESS [None]
  - MUSCULOSKELETAL PAIN [None]
  - CIRCULATORY COLLAPSE [None]
  - WEIGHT DECREASED [None]
  - SYNCOPE [None]
